FAERS Safety Report 9310536 (Version 3)
Quarter: 2014Q2

REPORT INFORMATION
  Report Type: Spontaneous
  Country: US (occurrence: US)
  Receive Date: 20130527
  Receipt Date: 20140409
  Transmission Date: 20141212
  Serious: No
  Sender: FDA-Public Use
  Company Number: US-PFIZER INC-2013158972

PATIENT
  Age: 61 Year
  Sex: Female

DRUGS (10)
  1. EFFEXOR [Suspect]
     Dosage: UNK
  2. NEURONTIN [Suspect]
     Dosage: UNK
  3. VISTARIL [Suspect]
     Dosage: UNK
  4. DEMEROL [Suspect]
     Dosage: UNK
  5. LEXAPRO [Suspect]
     Dosage: UNK
  6. TEGRETOL [Suspect]
     Dosage: UNK
  7. TOPAMAX [Suspect]
     Dosage: UNK
  8. VALIUM [Suspect]
     Dosage: UNK
  9. NEXIUM [Suspect]
     Dosage: UNK
  10. CYMBALTA [Suspect]
     Dosage: UNK

REACTIONS (1)
  - Drug hypersensitivity [Unknown]
